FAERS Safety Report 25896331 (Version 1)
Quarter: 2025Q4

REPORT INFORMATION
  Report Type: Other
  Country: EU (occurrence: EU)
  Receive Date: 20251008
  Receipt Date: 20251008
  Transmission Date: 20260118
  Serious: Yes (Other)
  Sender: ARGENX BVBA
  Company Number: None

PATIENT

DRUGS (1)
  1. EFGARTIGIMOD ALFA [Suspect]
     Active Substance: EFGARTIGIMOD ALFA
     Indication: Myasthenia gravis
     Dosage: 1000 MG, 1/WEEK
     Route: 058
     Dates: start: 20250814

REACTIONS (3)
  - Acute kidney injury [Unknown]
  - General physical health deterioration [Unknown]
  - Asthenia [Unknown]

NARRATIVE: CASE EVENT DATE: 20250921
